FAERS Safety Report 14735646 (Version 3)
Quarter: 2023Q2

REPORT INFORMATION
  Report Type: Spontaneous
  Country: US (occurrence: US)
  Receive Date: 20180409
  Receipt Date: 20230413
  Transmission Date: 20230721
  Serious: No
  Sender: FDA-Public Use
  Company Number: US-PFIZER INC-2018142177

PATIENT
  Age: 50 Year
  Sex: Female
  Weight: 81.65 kg

DRUGS (2)
  1. ELELYSO [Suspect]
     Active Substance: TALIGLUCERASE ALFA
     Indication: Gaucher^s disease
     Dosage: 3000 IU, 2X/WEEK (BI WEEKLY BY INFUSION)
  2. ELELYSO [Suspect]
     Active Substance: TALIGLUCERASE ALFA
     Dosage: 3000 IU, 2X/WEEK (BI WEEKLY BY INFUSION)
     Dates: end: 202301

REACTIONS (11)
  - Intention tremor [Unknown]
  - Arthralgia [Unknown]
  - Neck pain [Unknown]
  - Pain in extremity [Unknown]
  - White blood cell count increased [Unknown]
  - Haemoglobin increased [Unknown]
  - Haematocrit increased [Unknown]
  - Lymphocyte count increased [Unknown]
  - Red blood cell count increased [Unknown]
  - Product dose omission issue [Unknown]
  - Rotator cuff syndrome [Unknown]

NARRATIVE: CASE EVENT DATE: 20230206
